FAERS Safety Report 7060901-5 (Version None)
Quarter: 2010Q4

REPORT INFORMATION
  Report Type: 
  Country: None (occurrence: None)
  Receive Date: 20101025
  Receipt Date: 20101013
  Transmission Date: 20110411
  Serious: Yes (Hospitalization)
  Sender: FDA-Public Use
  Company Number: PHHY2010AU69227

PATIENT
  Sex: Female

DRUGS (2)
  1. ACLASTA [Suspect]
     Dosage: UNK
     Dates: start: 20100923
  2. ANTIBIOTICS [Concomitant]

REACTIONS (7)
  - ABDOMINAL PAIN [None]
  - ENZYME ABNORMALITY [None]
  - INFLUENZA [None]
  - NAUSEA [None]
  - PAIN IN EXTREMITY [None]
  - RESTLESS LEGS SYNDROME [None]
  - WHITE BLOOD CELL COUNT DECREASED [None]
